FAERS Safety Report 21818882 (Version 1)
Quarter: 2023Q1

REPORT INFORMATION
  Report Type: Report from Study
  Country: US (occurrence: US)
  Receive Date: 20230104
  Receipt Date: 20230104
  Transmission Date: 20230417
  Serious: No
  Sender: FDA-Public Use
  Company Number: US-ABBVIE-4257066

PATIENT
  Sex: Male

DRUGS (1)
  1. IMBRUVICA [Suspect]
     Active Substance: IBRUTINIB
     Indication: Iron deficiency anaemia
     Route: 048

REACTIONS (5)
  - Skin induration [Unknown]
  - Rash papular [Unknown]
  - Mobility decreased [Unknown]
  - Peripheral swelling [Unknown]
  - Petechiae [Unknown]
